FAERS Safety Report 10231298 (Version 1)
Quarter: 2014Q2

REPORT INFORMATION
  Report Type: Spontaneous
  Country: US (occurrence: None)
  Receive Date: 20140506
  Receipt Date: 20140506
  Transmission Date: 20141212
  Serious: Yes (Other)
  Sender: FDA-Public Use
  Company Number: 1301122

PATIENT
  Age: 60 Year
  Sex: Female

DRUGS (5)
  1. AVASTATIN (BEVACIZUMAB) [Suspect]
     Indication: PRODUCT USED FOR UNKNOWN INDICATION
  2. DOXIL (UNITED STATES) [Suspect]
     Indication: PRODUCT USED FOR UNKNOWN INDICATION
  3. TAXOFERE (DOCETAXEL) (INFUSION) [Concomitant]
  4. CARBOPLATIN (CARBOPLATIN) (INFUSION) [Concomitant]
  5. TAXOL (PACLITAXEL) [Concomitant]

REACTIONS (3)
  - Pyrexia [None]
  - Febrile neutropenia [None]
  - Neutrophil count decreased [None]
